FAERS Safety Report 5185994-1 (Version None)
Quarter: 2006Q4

REPORT INFORMATION
  Report Type: 
  Country: None (occurrence: None)
  Receive Date: 20061220
  Receipt Date: 20061010
  Transmission Date: 20070319
  Serious: No
  Sender: FDA-Public Use
  Company Number: US-GLAXOSMITHKLINE-A0623017A

PATIENT
  Age: 36 Year
  Sex: Male

DRUGS (1)
  1. NICODERM CQ [Suspect]
     Dates: start: 20061007, end: 20061007

REACTIONS (6)
  - BLOOD PRESSURE INCREASED [None]
  - DIZZINESS [None]
  - DRUG ADMINISTRATION ERROR [None]
  - ERYTHEMA [None]
  - FOOD CRAVING [None]
  - ILL-DEFINED DISORDER [None]
